FAERS Safety Report 7183131-5 (Version None)
Quarter: 2010Q4

REPORT INFORMATION
  Report Type: 
  Country: None (occurrence: None)
  Receive Date: 20101222
  Receipt Date: 20101213
  Transmission Date: 20110411
  Serious: Yes (Disabling, Other)
  Sender: FDA-Public Use
  Company Number: JP-TYCO HEALTHCARE/MALLINCKRODT-T201002421

PATIENT
  Age: 72 Year
  Sex: Male

DRUGS (1)
  1. OPTIRAY 350 [Suspect]
     Indication: PERCUTANEOUS CORONARY INTERVENTION
     Dosage: 300 ML, SINGLE
     Route: 013
     Dates: start: 20070101, end: 20070101

REACTIONS (1)
  - NEPHROPATHY TOXIC [None]
